FAERS Safety Report 5164485-8 (Version None)
Quarter: 2006Q4

REPORT INFORMATION
  Report Type: 
  Country: None (occurrence: None)
  Receive Date: 20061205
  Receipt Date: 20060922
  Transmission Date: 20070319
  Serious: Yes (Life-Threatening, Other)
  Sender: FDA-Public Use
  Company Number: GB-PURDUE-GBR_2006_0002493

PATIENT
  Age: 62 Year
  Sex: Male

DRUGS (13)
  1. UNIPHYLLIN CONTINUS TABLETS 300 MG [Suspect]
     Indication: CHRONIC OBSTRUCTIVE PULMONARY DISEASE
     Dosage: 300 MG, DAILY
     Route: 048
     Dates: end: 20060719
  2. SALBUTAMOL [Suspect]
     Indication: CHRONIC OBSTRUCTIVE PULMONARY DISEASE
     Dosage: 2.5 MG, Q4H
     Route: 055
  3. AMIODARONE HCL [Concomitant]
     Indication: DRUG USE FOR UNKNOWN INDICATION
  4. BECLOMETHASONE DIPROPIONATE [Concomitant]
     Indication: CHRONIC OBSTRUCTIVE PULMONARY DISEASE
     Dosage: 500 MCG, BID
     Route: 055
  5. DIDRONEL ^BASF^ [Concomitant]
     Indication: OSTEOPOROSIS
     Dosage: 1 DF, DAILY
     Route: 048
  6. FUROSEMIDE [Concomitant]
     Indication: CARDIAC FAILURE
     Dosage: 40 MG, DAILY
  7. IPRATROPIUM BROMIDE [Concomitant]
     Indication: CHRONIC OBSTRUCTIVE PULMONARY DISEASE
     Dosage: 500 MCG, QID
     Route: 055
  8. METFORMIN HCL [Concomitant]
     Indication: DIABETES MELLITUS
     Dosage: 500 MG, TID
  9. OMEPRAZOLE [Concomitant]
     Dosage: 20 MG, DAILY
  10. PREDNISOLONE [Concomitant]
     Indication: CHRONIC OBSTRUCTIVE PULMONARY DISEASE
     Dosage: 5 MG, DAILY
     Route: 048
  11. SALMETEROL [Concomitant]
     Indication: CHRONIC OBSTRUCTIVE PULMONARY DISEASE
     Dosage: 500 MCG, BID
     Route: 055
  12. SIMVASTATIN [Concomitant]
     Indication: PROPHYLAXIS
     Dosage: 40 MG, DAILY
  13. VERAPAMIL [Concomitant]
     Indication: DRUG USE FOR UNKNOWN INDICATION

REACTIONS (2)
  - DRUG TOXICITY [None]
  - TACHYCARDIA [None]
